FAERS Safety Report 25100661 (Version 1)
Quarter: 2025Q1

REPORT INFORMATION
  Report Type: Report from Study
  Country: CN (occurrence: CN)
  Receive Date: 20250320
  Receipt Date: 20250320
  Transmission Date: 20250409
  Serious: Yes (Other)
  Sender: ALEXION PHARMACEUTICALS
  Company Number: CN-ASTRAZENECA-202503GLO012251CN

PATIENT
  Age: 10 Year

DRUGS (16)
  1. SELUMETINIB [Suspect]
     Active Substance: SELUMETINIB
     Dosage: 30.000 MILLIGRAM, BID
     Route: 065
  2. SELUMETINIB [Suspect]
     Active Substance: SELUMETINIB
     Dosage: 30.000 MILLIGRAM, QD
     Route: 065
  3. SELUMETINIB [Suspect]
     Active Substance: SELUMETINIB
     Dosage: 20.000 MILLIGRAM, QD
  4. SELUMETINIB [Suspect]
     Active Substance: SELUMETINIB
     Dosage: 0.000 MILLIGRAM, QD
     Route: 065
  5. SELUMETINIB [Suspect]
     Active Substance: SELUMETINIB
     Dosage: 30.000 MILLIGRAM, QD
     Route: 065
  6. SELUMETINIB [Suspect]
     Active Substance: SELUMETINIB
     Dosage: 0.000 MILLIGRAM, BID
     Route: 065
  7. SELUMETINIB [Suspect]
     Active Substance: SELUMETINIB
     Dosage: 20.000 MILLIGRAM, QD
     Route: 065
  8. SELUMETINIB [Suspect]
     Active Substance: SELUMETINIB
     Dosage: 10.000 MILLIGRAM, QD
     Route: 065
  9. SELUMETINIB [Suspect]
     Active Substance: SELUMETINIB
     Dosage: 0.000 MILLIGRAM, QD
     Route: 065
  10. SELUMETINIB [Suspect]
     Active Substance: SELUMETINIB
     Dosage: 0.000 MILLIGRAM, QD
     Route: 065
  11. SELUMETINIB [Suspect]
     Active Substance: SELUMETINIB
     Dosage: 20.000 MILLIGRAM, QD
     Route: 065
  12. SELUMETINIB [Suspect]
     Active Substance: SELUMETINIB
     Dosage: 10.000 MILLIGRAM, QD
     Route: 065
  13. UREA [Concomitant]
     Active Substance: UREA
     Route: 065
  14. Compound lactic acid [Concomitant]
     Route: 065
  15. CEFUROXIME SODIUM [Concomitant]
     Active Substance: CEFUROXIME SODIUM
     Dosage: UNK GRAM, Q8H
     Route: 065
  16. Healthy care traditional chinese medicine liver tonic [Concomitant]
     Route: 065

REACTIONS (1)
  - Hyperbilirubinaemia [Not Recovered/Not Resolved]
